FAERS Safety Report 19985498 (Version 2)
Quarter: 2021Q4

REPORT INFORMATION
  Report Type: Spontaneous
  Country: US (occurrence: US)
  Receive Date: 20211021
  Receipt Date: 20211118
  Transmission Date: 20220304
  Serious: No
  Sender: FDA-Public Use
  Company Number: US-009507513-2109USA005350

PATIENT
  Age: 67 Year
  Sex: Female

DRUGS (2)
  1. KEYTRUDA [Suspect]
     Active Substance: PEMBROLIZUMAB
     Indication: Undifferentiated sarcoma
  2. PAZOPANIB [Concomitant]
     Active Substance: PAZOPANIB
     Indication: Undifferentiated sarcoma

REACTIONS (1)
  - Product use in unapproved indication [Unknown]
